FAERS Safety Report 9489945 (Version 1)
Quarter: 2013Q3

REPORT INFORMATION
  Report Type: Spontaneous
  Country: FR (occurrence: FR)
  Receive Date: 20130829
  Receipt Date: 20130829
  Transmission Date: 20140515
  Serious: Yes (Life-Threatening, Hospitalization)
  Sender: FDA-Public Use
  Company Number: FR-ROCHE-1268199

PATIENT
  Age: 12 Year
  Sex: Male

DRUGS (2)
  1. MABTHERA [Suspect]
     Indication: GRAFT VERSUS HOST DISEASE
     Route: 041
     Dates: start: 201303, end: 20130405
  2. NEORAL [Suspect]
     Indication: BONE MARROW TRANSPLANT
     Route: 048
     Dates: start: 201212, end: 20130513

REACTIONS (2)
  - Acute respiratory distress syndrome [Recovered/Resolved]
  - Pneumocystis jirovecii pneumonia [Recovered/Resolved]
